FAERS Safety Report 6411560-3 (Version None)
Quarter: 2009Q4

REPORT INFORMATION
  Report Type: 
  Country: None (occurrence: None)
  Receive Date: 20091023
  Receipt Date: 20091016
  Transmission Date: 20100525
  Serious: Yes (Other)
  Sender: FDA-Public Use
  Company Number: US-JNJFOC-20091005719

PATIENT
  Sex: Male
  Weight: 104.33 kg

DRUGS (6)
  1. TOPAMAX [Suspect]
     Indication: NEURALGIA
     Route: 048
     Dates: start: 20080717
  2. METOPROLOL [Concomitant]
     Indication: HYPERTENSION
     Route: 065
  3. IBUPROFEN [Concomitant]
     Route: 065
  4. ASPIRIN [Concomitant]
     Route: 048
  5. LIPITOR [Concomitant]
     Indication: BLOOD CHOLESTEROL
     Route: 048
  6. NORTRIPTYLINE [Concomitant]
     Indication: ANTIDEPRESSANT THERAPY
     Route: 065

REACTIONS (1)
  - DEAFNESS [None]
